FAERS Safety Report 13512725 (Version 1)
Quarter: 2017Q2

REPORT INFORMATION
  Report Type: Spontaneous
  Country: US (occurrence: US)
  Receive Date: 20170504
  Receipt Date: 20170504
  Transmission Date: 20170830
  Serious: Yes (Disabling)
  Sender: FDA-Public Use
  Company Number: None

PATIENT
  Sex: Female
  Weight: 81.72 kg

DRUGS (1)
  1. AVASTIN [Suspect]
     Active Substance: BEVACIZUMAB
     Indication: MACULAR DEGENERATION
     Dates: start: 201702

REACTIONS (6)
  - Balance disorder [None]
  - Quality of life decreased [None]
  - Eye complication associated with device [None]
  - Suspected product contamination [None]
  - Vitreous floaters [None]
  - Visual impairment [None]
